FAERS Safety Report 8469278-1 (Version None)
Quarter: 2012Q2

REPORT INFORMATION
  Report Type: 
  Country: None (occurrence: None)
  Receive Date: 20120626
  Receipt Date: 20120618
  Transmission Date: 20120825
  Serious: Yes (Other)
  Sender: FDA-Public Use
  Company Number: US-ELI_LILLY_AND_COMPANY-US201206007270

PATIENT
  Age: 37 Year
  Sex: Male

DRUGS (1)
  1. AXIRON [Suspect]
     Dosage: 60 MG, UNK
     Route: 061

REACTIONS (1)
  - BLADDER CANCER RECURRENT [None]
